FAERS Safety Report 7014192-1 (Version None)
Quarter: 2010Q3

REPORT INFORMATION
  Report Type: 
  Country: None (occurrence: None)
  Receive Date: 20100927
  Receipt Date: 20100712
  Transmission Date: 20110219
  Serious: Yes (Other)
  Sender: FDA-Public Use
  Company Number: US-BAYER-201018313NA

PATIENT
  Age: 22 Year
  Sex: Female
  Weight: 65 kg

DRUGS (5)
  1. YAZ [Suspect]
     Indication: PREMENSTRUAL SYNDROME
     Route: 048
     Dates: start: 20070901, end: 20090901
  2. YAZ [Suspect]
     Route: 048
     Dates: start: 20070901, end: 20090901
  3. YASMIN [Suspect]
     Indication: PRODUCT USED FOR UNKNOWN INDICATION
     Route: 048
  4. LEXAPRO [Concomitant]
     Indication: PRODUCT USED FOR UNKNOWN INDICATION
     Route: 065
     Dates: start: 20070818, end: 20081026
  5. PEPTO-BISMOL [Concomitant]
     Indication: GASTRIC DISORDER
     Route: 065
     Dates: start: 20081001, end: 20081201

REACTIONS (5)
  - ABDOMINAL PAIN UPPER [None]
  - CHOLELITHIASIS [None]
  - FAT INTOLERANCE [None]
  - NAUSEA [None]
  - VOMITING [None]
